FAERS Safety Report 11415360 (Version 2)
Quarter: 2015Q3

REPORT INFORMATION
  Report Type: Report from Study
  Country: GE (occurrence: GE)
  Receive Date: 20150825
  Receipt Date: 20150914
  Transmission Date: 20151125
  Serious: Yes (Death, Other)
  Sender: FDA-Public Use
  Company Number: GE-JNJFOC-20150813276

PATIENT
  Age: 44 Year
  Sex: Male
  Weight: 59 kg

DRUGS (19)
  1. TMC207 [Suspect]
     Active Substance: BEDAQUILINE
     Indication: HIV TEST POSITIVE
     Route: 048
     Dates: start: 20150501
  2. AMOXICILLIN AND CLAVULANATE [Concomitant]
     Active Substance: AMOXICILLIN\CLAVULANIC ACID
     Indication: TUBERCULOSIS
     Route: 048
     Dates: end: 20150722
  3. AMOXICILLIN AND CLAVULANATE [Concomitant]
     Active Substance: AMOXICILLIN\CLAVULANIC ACID
     Indication: TUBERCULOSIS
     Route: 048
     Dates: start: 20150701, end: 20150709
  4. CAPREOMYCIN [Concomitant]
     Active Substance: CAPREOMYCIN
     Indication: TUBERCULOSIS
     Route: 030
     Dates: start: 20150501, end: 20150722
  5. CAPREOMYCIN [Concomitant]
     Active Substance: CAPREOMYCIN
     Indication: TUBERCULOSIS
     Route: 030
     Dates: start: 20140912
  6. TMC207 [Suspect]
     Active Substance: BEDAQUILINE
     Indication: ENCEPHALITIS
     Route: 048
     Dates: end: 20150722
  7. TMC207 [Suspect]
     Active Substance: BEDAQUILINE
     Indication: ENCEPHALITIS
     Route: 048
     Dates: start: 20150501
  8. AMOXICILLIN AND CLAVULANATE [Concomitant]
     Active Substance: AMOXICILLIN\CLAVULANIC ACID
     Indication: TUBERCULOSIS
     Dosage: 875/125 MG
     Route: 048
     Dates: start: 20150501, end: 20150521
  9. CLOFAZIMINE [Concomitant]
     Active Substance: CLOFAZIMINE
     Indication: TUBERCULOSIS
     Route: 048
     Dates: start: 20150501, end: 20150722
  10. IMIPENEM [Concomitant]
     Active Substance: IMIPENEM
     Indication: TUBERCULOSIS
     Route: 042
     Dates: start: 20150701, end: 20150709
  11. NEVIRAPINE. [Concomitant]
     Active Substance: NEVIRAPINE
     Indication: HIV INFECTION
     Route: 048
     Dates: start: 20150415, end: 20150806
  12. TENOFOVIR [Concomitant]
     Active Substance: TENOFOVIR
     Indication: HIV INFECTION
     Route: 048
     Dates: start: 20141001
  13. LINEZOLID. [Concomitant]
     Active Substance: LINEZOLID
     Indication: TUBERCULOSIS
     Route: 048
     Dates: start: 20150501, end: 20150722
  14. TMC207 [Suspect]
     Active Substance: BEDAQUILINE
     Indication: PULMONARY TUBERCULOSIS
     Route: 048
     Dates: start: 20150501
  15. EMTRICITABINE [Concomitant]
     Active Substance: EMTRICITABINE
     Indication: HIV INFECTION
     Route: 048
     Dates: start: 20141001
  16. IMIPENEM [Concomitant]
     Active Substance: IMIPENEM
     Indication: TUBERCULOSIS
     Route: 042
     Dates: start: 20150501, end: 20150521
  17. TMC207 [Suspect]
     Active Substance: BEDAQUILINE
     Indication: HIV TEST POSITIVE
     Route: 048
     Dates: end: 20150722
  18. TMC207 [Suspect]
     Active Substance: BEDAQUILINE
     Indication: PULMONARY TUBERCULOSIS
     Route: 048
     Dates: end: 20150722
  19. CLOFAZIMINE [Concomitant]
     Active Substance: CLOFAZIMINE
     Indication: TUBERCULOSIS
     Route: 048
     Dates: start: 20150331

REACTIONS (2)
  - Hyperbilirubinaemia [Fatal]
  - Hepatitis [Fatal]

NARRATIVE: CASE EVENT DATE: 20150519
